FAERS Safety Report 14951352 (Version 1)
Quarter: 2018Q2

REPORT INFORMATION
  Report Type: Spontaneous
  Country: NO (occurrence: NO)
  Receive Date: 20180530
  Receipt Date: 20180530
  Transmission Date: 20180711
  Serious: Yes (Hospitalization)
  Sender: FDA-Public Use
  Company Number: PHHY2018NO009968

PATIENT
  Age: 56 Year
  Sex: Male

DRUGS (3)
  1. RISPERIDONE. [Interacting]
     Active Substance: RISPERIDONE
     Dosage: 2 MG, QD
     Route: 048
  2. RISPERIDONE. [Interacting]
     Active Substance: RISPERIDONE
     Dosage: 8 MG, QD
     Route: 048
  3. RISPERIDONE. [Suspect]
     Active Substance: RISPERIDONE
     Indication: SCHIZOPHRENIA
     Dosage: 8 MG, QD
     Route: 048

REACTIONS (9)
  - Weight decreased [Unknown]
  - Malaise [Unknown]
  - Drug interaction [Unknown]
  - Suspiciousness [Unknown]
  - Abnormal behaviour [Unknown]
  - Agitation [Unknown]
  - Mental disorder [Unknown]
  - Hallucination, auditory [Unknown]
  - Hostility [Unknown]
